FAERS Safety Report 7983383-5 (Version None)
Quarter: 2011Q4

REPORT INFORMATION
  Report Type: 
  Country: None (occurrence: None)
  Receive Date: 20111215
  Receipt Date: 20111130
  Transmission Date: 20120403
  Serious: Yes (Other)
  Sender: FDA-Public Use
  Company Number: US-VALEANT-2011VX003558

PATIENT
  Age: 36 Year
  Sex: Female

DRUGS (1)
  1. DIASTAT [Suspect]
     Route: 067

REACTIONS (2)
  - THERAPEUTIC RESPONSE DELAYED [None]
  - INCORRECT ROUTE OF DRUG ADMINISTRATION [None]
